FAERS Safety Report 9349109 (Version 2)
Quarter: 2013Q3

REPORT INFORMATION
  Report Type: Spontaneous
  Country: FR (occurrence: FR)
  Receive Date: 20130614
  Receipt Date: 20130813
  Transmission Date: 20140515
  Serious: Yes (Hospitalization, Other)
  Sender: FDA-Public Use
  Company Number: FR-009507513-1306FRA002843

PATIENT
  Age: 81 Year
  Sex: Male

DRUGS (3)
  1. NOROXINE [Suspect]
     Indication: URINARY TRACT INFECTION
     Dosage: 400 MG, QD
     Route: 048
     Dates: start: 20130513, end: 20130514
  2. CIFLOX (CIPROFLOXACIN HYDROCHLORIDE) [Suspect]
     Dosage: 400 MG, BID
     Route: 042
     Dates: start: 20130514
  3. ROCEPHIN [Suspect]
     Dosage: 1 G, QD
     Route: 042
     Dates: start: 20130514

REACTIONS (1)
  - Rhabdomyolysis [Recovered/Resolved]
